FAERS Safety Report 9846774 (Version 2)
Quarter: 2014Q1

REPORT INFORMATION
  Report Type: Spontaneous
  Country: AT (occurrence: AT)
  Receive Date: 20140127
  Receipt Date: 20140204
  Transmission Date: 20141002
  Serious: Yes (Other)
  Sender: FDA-Public Use
  Company Number: AT-009507513-1401AUT008251

PATIENT
  Age: 24 Year
  Sex: Female
  Weight: 72 kg

DRUGS (2)
  1. IMPLANON NXT [Suspect]
     Indication: CONTRACEPTION
     Dosage: UNK
     Route: 058
     Dates: start: 20131015, end: 20140117
  2. IMPLANON NXT [Suspect]
     Dosage: UNK
     Route: 059
     Dates: start: 20140117

REACTIONS (2)
  - Adverse event [Recovered/Resolved]
  - Device breakage [Recovered/Resolved]
